FAERS Safety Report 25984476 (Version 1)
Quarter: 2025Q4

REPORT INFORMATION
  Report Type: Spontaneous
  Country: US (occurrence: US)
  Receive Date: 20251031
  Receipt Date: 20251031
  Transmission Date: 20260118
  Serious: Yes (Other)
  Sender: VERTEX
  Company Number: US-VERTEX PHARMACEUTICALS-2025-017970

PATIENT
  Sex: Male

DRUGS (1)
  1. ORKAMBI [Suspect]
     Active Substance: IVACAFTOR\LUMACAFTOR
     Indication: Cystic fibrosis
     Dosage: LUMACAFTOR/IVACAFTOR
     Route: 048

REACTIONS (2)
  - Hepatic cirrhosis [Not Recovered/Not Resolved]
  - Hypersplenism [Not Recovered/Not Resolved]
